FAERS Safety Report 5029322-0 (Version None)
Quarter: 2006Q2

REPORT INFORMATION
  Report Type: 
  Country: None (occurrence: None)
  Receive Date: 20060615
  Receipt Date: 20060615
  Transmission Date: 20061013
  Serious: Yes (Life-Threatening, Hospitalization)
  Sender: FDA-Public Use
  Company Number: None

PATIENT
  Sex: Male
  Weight: 72.1219 kg

DRUGS (3)
  1. CYTARABINE [Suspect]
     Indication: ACUTE LYMPHOCYTIC LEUKAEMIA
     Dosage: 146 MG DAILY X 5 DAYS , INCREASE IV
     Route: 042
     Dates: start: 20060530, end: 20060604
  2. VINCRISTINE [Suspect]
     Dosage: 2 MG DAY 1, 8, 15 AND 22 IV
     Route: 042
     Dates: start: 20060530
  3. VINCRISTINE [Suspect]
     Dosage: 2 MG DAY 1, 8, 15 AND 22 IV
     Route: 042
     Dates: start: 20060606

REACTIONS (5)
  - ABDOMINAL PAIN [None]
  - DIARRHOEA [None]
  - ENTERITIS [None]
  - NEUTROPENIA [None]
  - THROMBOCYTOPENIA [None]
